FAERS Safety Report 14825864 (Version 4)
Quarter: 2018Q2

REPORT INFORMATION
  Report Type: Spontaneous
  Country: US (occurrence: US)
  Receive Date: 20180430
  Receipt Date: 20180518
  Transmission Date: 20180711
  Serious: Yes (Other)
  Sender: FDA-Public Use
  Company Number: US-PFIZER INC-2018173199

PATIENT
  Age: 56 Year
  Sex: Male
  Weight: 73 kg

DRUGS (2)
  1. XALKORI [Suspect]
     Active Substance: CRIZOTINIB
     Dosage: 250 MG, 2X/DAY
     Route: 048
     Dates: start: 20171018
  2. XALKORI [Suspect]
     Active Substance: CRIZOTINIB
     Indication: NON-SMALL CELL LUNG CANCER
     Dosage: 250 MG, 2X/DAY
     Route: 048
     Dates: start: 20170929

REACTIONS (13)
  - Aspartate aminotransferase increased [Recovered/Resolved]
  - Fatigue [Recovered/Resolved]
  - Neoplasm progression [Unknown]
  - Pulmonary embolism [Recovered/Resolved]
  - Weight fluctuation [Recovered/Resolved]
  - Dyspepsia [Recovered/Resolved]
  - Migraine [Recovered/Resolved]
  - Blood alkaline phosphatase increased [Recovered/Resolved]
  - Pleural effusion [Recovered/Resolved]
  - Visual impairment [Recovered/Resolved]
  - Alanine aminotransferase increased [Recovered/Resolved]
  - Dysgeusia [Recovered/Resolved]
  - Musculoskeletal pain [Recovered/Resolved]

NARRATIVE: CASE EVENT DATE: 20170929
